FAERS Safety Report 11619333 (Version 2)
Quarter: 2015Q4

REPORT INFORMATION
  Report Type: Spontaneous
  Country: NL (occurrence: NL)
  Receive Date: 20151012
  Receipt Date: 20151015
  Transmission Date: 20160304
  Serious: Yes (Hospitalization)
  Sender: FDA-Public Use
  Company Number: NL-NOVOPROD-463387

PATIENT
  Age: 76 Year
  Sex: Male
  Weight: 115 kg

DRUGS (1)
  1. VICTOZA [Suspect]
     Active Substance: LIRAGLUTIDE
     Indication: TYPE 2 DIABETES MELLITUS
     Dosage: 1.2 MG, QD
     Route: 058
     Dates: start: 201502

REACTIONS (4)
  - Transient ischaemic attack [Recovered/Resolved]
  - Weight decreased [Unknown]
  - Dizziness [Unknown]
  - Nausea [Unknown]
